FAERS Safety Report 13646200 (Version 1)
Quarter: 2017Q2

REPORT INFORMATION
  Report Type: Spontaneous
  Country: DE (occurrence: DE)
  Receive Date: 20170613
  Receipt Date: 20170613
  Transmission Date: 20170830
  Serious: Yes (Other)
  Sender: FDA-Public Use
  Company Number: DE-009507513-1612DEU008920

PATIENT
  Age: 7 Year
  Sex: Male
  Weight: 30.8 kg

DRUGS (3)
  1. SINGULAIR [Suspect]
     Active Substance: MONTELUKAST SODIUM
     Indication: ASTHMA
     Dosage: UNK
     Route: 048
     Dates: start: 20161109, end: 20161213
  2. MONTELUKAST [Suspect]
     Active Substance: MONTELUKAST SODIUM
     Dosage: 5 MG, UNK
  3. MONTELUKAST SODIUM. [Suspect]
     Active Substance: MONTELUKAST SODIUM
     Dosage: UNK
     Route: 048
     Dates: start: 201510

REACTIONS (4)
  - Anxiety [Unknown]
  - Asthma [Unknown]
  - Epilepsy [Recovered/Resolved with Sequelae]
  - Dermatitis atopic [Unknown]

NARRATIVE: CASE EVENT DATE: 20161213
